FAERS Safety Report 5621795-5 (Version None)
Quarter: 2008Q1

REPORT INFORMATION
  Report Type: 
  Country: None (occurrence: None)
  Receive Date: 20080204
  Receipt Date: 20071210
  Transmission Date: 20080703
  Serious: Yes (Hospitalization)
  Sender: FDA-Public Use
  Company Number: 2008002843

PATIENT
  Sex: Female

DRUGS (10)
  1. BENADRYL [Suspect]
  2. CHANTIX [Suspect]
  3. ZITHROMAX [Suspect]
     Dosage: INTRAVENOUS
     Route: 042
  4. DOXYCYCLINE [Suspect]
  5. TIOTROPIUM BROMIDE (TIOTROPIUM BROMIDE) [Suspect]
  6. LEVAQUIN [Suspect]
  7. XOPENEX [Concomitant]
  8. PREDNISONE TAB [Concomitant]
  9. ROCEPHIN [Concomitant]
  10. ADVAIR DISKUS 100/50 [Concomitant]

REACTIONS (3)
  - PNEUMONIA [None]
  - PRURITUS [None]
  - RASH [None]
